FAERS Safety Report 11781544 (Version 4)
Quarter: 2016Q1

REPORT INFORMATION
  Report Type: Report from Study
  Country: US (occurrence: US)
  Receive Date: 20151126
  Receipt Date: 20160209
  Transmission Date: 20160525
  Serious: No
  Sender: FDA-Public Use
  Company Number: US-AMGEN-USASL2015119367

PATIENT
  Age: 59 Year
  Sex: Female
  Weight: 133.79 kg

DRUGS (7)
  1. LEVOTHYROXINE. [Concomitant]
     Active Substance: LEVOTHYROXINE
     Dosage: 1 UNK, UNK
     Route: 048
     Dates: start: 20130515
  2. LORATADINE. [Concomitant]
     Active Substance: LORATADINE
     Dosage: 1 UNK, QD
     Route: 048
     Dates: start: 20130515
  3. ZOCOR [Concomitant]
     Active Substance: SIMVASTATIN
     Dosage: 1 UNK, QD
     Route: 048
     Dates: start: 20130515
  4. ULTRAM [Concomitant]
     Active Substance: TRAMADOL HYDROCHLORIDE
     Dosage: 1 UNK, BID
     Route: 048
     Dates: start: 20130515
  5. COREG [Concomitant]
     Active Substance: CARVEDILOL
     Dosage: 1 UNK, BID
     Route: 048
     Dates: start: 20130515
  6. PHENOBARBITAL. [Concomitant]
     Active Substance: PHENOBARBITAL
     Dosage: 1 UNK, TID
     Route: 048
     Dates: start: 20130515
  7. PROLIA [Suspect]
     Active Substance: DENOSUMAB
     Indication: OSTEOPOROSIS
     Dosage: 60 MG/ML, Q6MO
     Route: 058
     Dates: start: 20120515, end: 201508

REACTIONS (7)
  - Condition aggravated [Recovered/Resolved]
  - Swelling [Recovering/Resolving]
  - Rash [Recovered/Resolved]
  - Drug hypersensitivity [Recovered/Resolved]
  - Pain in jaw [Recovering/Resolving]
  - Toothache [Recovering/Resolving]
  - Arthralgia [Unknown]

NARRATIVE: CASE EVENT DATE: 201205
